FAERS Safety Report 19682688 (Version 5)
Quarter: 2025Q1

REPORT INFORMATION
  Report Type: Report from Study
  Country: US (occurrence: US)
  Receive Date: 20210810
  Receipt Date: 20250212
  Transmission Date: 20250409
  Serious: Yes (Hospitalization, Other)
  Sender: TAKEDA
  Company Number: US-TAKEDA-US202015854

PATIENT
  Age: 57 Year
  Sex: Female

DRUGS (2)
  1. HUMAN IMMUNOGLOBULIN G\HYALURONIDASE RECOMBINANT HUMAN [Suspect]
     Active Substance: HUMAN IMMUNOGLOBULIN G\HYALURONIDASE (HUMAN RECOMBINANT)
     Indication: Selective IgG subclass deficiency
  2. HUMAN IMMUNOGLOBULIN G\HYALURONIDASE RECOMBINANT HUMAN [Suspect]
     Active Substance: HUMAN IMMUNOGLOBULIN G\HYALURONIDASE (HUMAN RECOMBINANT)
     Indication: Primary immunodeficiency syndrome
     Dosage: UNK UNK, MONTHLY

REACTIONS (11)
  - Lyme disease [Unknown]
  - COVID-19 [Unknown]
  - Sinus pain [Unknown]
  - Depression [Unknown]
  - Cyclic neutropenia [Unknown]
  - Infusion site scar [Unknown]
  - Viral infection [Unknown]
  - Rash [Unknown]
  - Weight decreased [Unknown]
  - Skin ulcer [Unknown]
  - Lung disorder [Unknown]

NARRATIVE: CASE EVENT DATE: 20241101
